FAERS Safety Report 6111214-7 (Version None)
Quarter: 2009Q1

REPORT INFORMATION
  Report Type: 
  Country: None (occurrence: None)
  Receive Date: 20090309
  Receipt Date: 20090309
  Transmission Date: 20090719
  Serious: No
  Sender: FDA-Public Use
  Company Number: None

PATIENT
  Age: 39 Year
  Sex: Female
  Weight: 92.5338 kg

DRUGS (1)
  1. VALTREX [Suspect]
     Indication: ORAL HERPES
     Dosage: 1 GRAM TID FOR 3 DAYS PO
     Route: 048
     Dates: start: 20090224, end: 20090225

REACTIONS (5)
  - ABDOMINAL DISCOMFORT [None]
  - ABDOMINAL PAIN [None]
  - ASPARTATE AMINOTRANSFERASE INCREASED [None]
  - BLOOD CREATININE INCREASED [None]
  - NAUSEA [None]
